FAERS Safety Report 21340217 (Version 3)
Quarter: 2022Q4

REPORT INFORMATION
  Report Type: Spontaneous
  Country: IT (occurrence: IT)
  Receive Date: 20220916
  Receipt Date: 20221103
  Transmission Date: 20230113
  Serious: Yes (Hospitalization, Other)
  Sender: FDA-Public Use
  Company Number: IT-UCBSA-2022054251

PATIENT
  Age: 5 Year
  Sex: Male

DRUGS (16)
  1. KEPPRA [Suspect]
     Active Substance: LEVETIRACETAM
     Indication: Epilepsy
     Dosage: LEVETIRACETAM UP TO 50 MG/KG
  2. KEPPRA [Suspect]
     Active Substance: LEVETIRACETAM
     Indication: Immune-mediated encephalitis
  3. KEPPRA [Suspect]
     Active Substance: LEVETIRACETAM
     Indication: Febrile infection-related epilepsy syndrome
  4. KEPPRA [Suspect]
     Active Substance: LEVETIRACETAM
     Indication: Off label use
  5. VALPROATE [Suspect]
     Active Substance: VALPROIC ACID
     Indication: Epilepsy
     Dosage: VALPROATE UP TO 30 MG/KG
  6. PHENYTOIN [Suspect]
     Active Substance: PHENYTOIN
     Indication: Epilepsy
     Dosage: UNK
  7. PHENOBARBITAL [Suspect]
     Active Substance: PHENOBARBITAL
     Indication: Epilepsy
     Dosage: UNK
  8. METHYLPREDNISOLONE SODIUM SUCCINATE [Suspect]
     Active Substance: METHYLPREDNISOLONE SODIUM SUCCINATE
     Indication: Immune-mediated encephalitis
     Dosage: 30 MG/KG, 1X/DAY FOR 5 DAYS (HIGH DOSE)
     Route: 042
  9. METHYLPREDNISOLONE SODIUM SUCCINATE [Suspect]
     Active Substance: METHYLPREDNISOLONE SODIUM SUCCINATE
     Indication: Encephalopathy
  10. METHYLPREDNISOLONE SODIUM SUCCINATE [Suspect]
     Active Substance: METHYLPREDNISOLONE SODIUM SUCCINATE
     Indication: Febrile infection-related epilepsy syndrome
  11. THIOPENTAL [Suspect]
     Active Substance: THIOPENTAL
     Indication: Epilepsy
     Dosage: UNK
  12. VALPROIC ACID [Suspect]
     Active Substance: VALPROIC ACID
     Indication: Febrile infection-related epilepsy syndrome
     Dosage: VALPROATE UP TO 30 MG/KG
  13. VALPROIC ACID [Suspect]
     Active Substance: VALPROIC ACID
     Indication: Immune-mediated encephalitis
  14. VALPROIC ACID [Suspect]
     Active Substance: VALPROIC ACID
     Indication: Epilepsy
  15. MIDAZOLAM [Concomitant]
     Active Substance: MIDAZOLAM
     Indication: Encephalopathy
  16. TOPIRAMATE [Concomitant]
     Active Substance: TOPIRAMATE
     Indication: Encephalopathy

REACTIONS (14)
  - Partial seizures [Recovering/Resolving]
  - Hemiparesis [Recovered/Resolved]
  - Hallucination [Unknown]
  - Cerebral atrophy [Recovered/Resolved]
  - Behaviour disorder [Recovering/Resolving]
  - Language disorder [Recovering/Resolving]
  - Asthenia [Unknown]
  - Insomnia [Unknown]
  - Aphasia [Unknown]
  - Inappropriate affect [Unknown]
  - Echopraxia [Unknown]
  - Psychomotor hyperactivity [Unknown]
  - Multiple-drug resistance [Unknown]
  - Off label use [Unknown]
